FAERS Safety Report 13969062 (Version 2)
Quarter: 2017Q4

REPORT INFORMATION
  Report Type: Spontaneous
  Country: FR (occurrence: FR)
  Receive Date: 20170914
  Receipt Date: 20171110
  Transmission Date: 20180321
  Serious: Yes (Other)
  Sender: FDA-Public Use
  Company Number: FR-MERCK KGAA-2026139

PATIENT
  Age: 46 Year
  Sex: Male

DRUGS (1)
  1. NOVOTHYROX [Suspect]
     Active Substance: LEVOTHYROXINE SODIUM
     Indication: HYPOTHYROIDISM
     Route: 048
     Dates: start: 201705

REACTIONS (7)
  - Headache [Unknown]
  - Vision blurred [Unknown]
  - Hypertension [Unknown]
  - Asthenia [Unknown]
  - Hyperhidrosis [Unknown]
  - Chest pain [Unknown]
  - Vertigo [Unknown]

NARRATIVE: CASE EVENT DATE: 201705
